FAERS Safety Report 4440637-7 (Version None)
Quarter: 2004Q3

REPORT INFORMATION
  Report Type: 
  Country: None (occurrence: None)
  Receive Date: 20040901
  Receipt Date: 20040901
  Transmission Date: 20050211
  Serious: Yes (Hospitalization)
  Sender: FDA-Public Use
  Company Number: None

PATIENT
  Sex: Male
  Weight: 92.9874 kg

DRUGS (9)
  1. PHOSLO [Suspect]
     Indication: RENAL FAILURE
     Dosage: 2 TABS PO TID CC [PRIOR TO ADMISSION[
     Route: 048
  2. RENAGEL [Suspect]
     Indication: RENAL FAILURE
     Dosage: 3 CAPS PO TID CC [PRIOR TO ADMISSION]
     Route: 048
  3. NEPHRO-VITE [Concomitant]
  4. DARVOCET-N 100 [Concomitant]
  5. LOPRESSOR [Concomitant]
  6. ACCUPRIL [Concomitant]
  7. ECOTRIN [Concomitant]
  8. PREVACID [Concomitant]
  9. TUMS [Concomitant]

REACTIONS (2)
  - DISEASE RECURRENCE [None]
  - PANCREATITIS [None]
